FAERS Safety Report 25598186 (Version 2)
Quarter: 2025Q3

REPORT INFORMATION
  Report Type: Spontaneous
  Country: CA (occurrence: CA)
  Receive Date: 20250723
  Receipt Date: 20250828
  Transmission Date: 20251020
  Serious: Yes (Hospitalization, Other)
  Sender: TAKEDA
  Company Number: CA-TAKEDA-2025TUS065058

PATIENT
  Age: 13 Year
  Sex: Female
  Weight: 40 kg

DRUGS (7)
  1. GAMMAGARD LIQUID [Suspect]
     Active Substance: HUMAN IMMUNOGLOBULIN G
     Indication: Kidney transplant rejection
     Dosage: 42.5 GRAM, Q4WEEKS
  2. GAMMAGARD LIQUID [Suspect]
     Active Substance: HUMAN IMMUNOGLOBULIN G
     Dosage: 42 GRAM, Q4WEEKS
     Dates: start: 20250320, end: 20250320
  3. ALBUREX [Suspect]
     Active Substance: ALBUMIN HUMAN
     Indication: Kidney transplant rejection
  4. ALBUREX [Suspect]
     Active Substance: ALBUMIN HUMAN
     Dates: start: 20250320, end: 20250320
  5. CETIRIZINE [Concomitant]
     Active Substance: CETIRIZINE HYDROCHLORIDE
  6. HYDROCORTISONE [Concomitant]
     Active Substance: HYDROCORTISONE
  7. TYLENOL [Concomitant]
     Active Substance: ACETAMINOPHEN

REACTIONS (7)
  - Oxygen saturation decreased [Recovering/Resolving]
  - Pulmonary oedema [Recovering/Resolving]
  - Respiratory distress [Recovering/Resolving]
  - Transfusion-related circulatory overload [Recovering/Resolving]
  - Haemoglobin decreased [Unknown]
  - Alpha haemolytic streptococcal infection [Unknown]
  - N-terminal prohormone brain natriuretic peptide increased [Unknown]

NARRATIVE: CASE EVENT DATE: 20250320
